FAERS Safety Report 9968925 (Version 1)
Quarter: 2014Q1

REPORT INFORMATION
  Report Type: Report from Study
  Country: US (occurrence: US)
  Receive Date: 20140306
  Receipt Date: 20140306
  Transmission Date: 20141002
  Serious: No
  Sender: FDA-Public Use
  Company Number: US-ABBVIE-13P-163-1143444-00

PATIENT
  Age: 44 Year
  Sex: Male

DRUGS (8)
  1. HUMIRA [Suspect]
     Indication: CROHN^S DISEASE
     Dosage: 4 INJECTIONS
     Dates: start: 20130809, end: 20130809
  2. HUMIRA [Suspect]
     Dosage: 2 INJECTIONS
     Dates: start: 20130823, end: 20130823
  3. HUMIRA [Suspect]
  4. ACCUTANE [Concomitant]
     Indication: PROPHYLAXIS
     Route: 048
  5. PREDNISONE [Concomitant]
     Indication: ILL-DEFINED DISORDER
     Dosage: DOSE VARIES
     Route: 048
  6. SYNTHROID [Concomitant]
     Indication: HYPOTHYROIDISM
     Dosage: DAILY
     Route: 048
  7. CYTOMEL [Concomitant]
     Indication: HYPOTHYROIDISM
     Dosage: DAILY
     Route: 048
  8. LOVAZA [Concomitant]
     Indication: BLOOD TRIGLYCERIDES INCREASED
     Dosage: DAILY
     Route: 048

REACTIONS (2)
  - Injection site pain [Recovered/Resolved]
  - Injection site pain [Recovered/Resolved]
